FAERS Safety Report 23936152 (Version 2)
Quarter: 2024Q2

REPORT INFORMATION
  Report Type: Spontaneous
  Country: IT (occurrence: IT)
  Receive Date: 20240604
  Receipt Date: 20240611
  Transmission Date: 20240715
  Serious: Yes (Other)
  Sender: FDA-Public Use
  Company Number: IT-SUN PHARMACEUTICAL INDUSTRIES LTD-2024RR-448554

PATIENT

DRUGS (5)
  1. ODOMZO [Suspect]
     Active Substance: SONIDEGIB
     Indication: Basal cell carcinoma
     Dosage: 200 MILLIGRAM, DAILY
     Route: 048
     Dates: start: 20240516
  2. TAFLUPROST [Concomitant]
     Active Substance: TAFLUPROST
     Indication: Eye disorder
     Dosage: UNK
     Route: 047
  3. Azzarga [Concomitant]
     Indication: Eye disorder
     Dosage: UNK
     Route: 047
  4. CARVEDILOL [Concomitant]
     Active Substance: CARVEDILOL
     Indication: Blood pressure measurement
     Dosage: 75 MILLIGRAM, DAILY
     Route: 065
  5. Brimica to clear airways [Concomitant]
     Indication: Prophylaxis
     Dosage: UNK
     Route: 065

REACTIONS (1)
  - Headache [Recovered/Resolved]

NARRATIVE: CASE EVENT DATE: 20240517
